FAERS Safety Report 10490524 (Version 1)
Quarter: 2014Q4

REPORT INFORMATION
  Report Type: Spontaneous
  Country: US (occurrence: US)
  Receive Date: 20141002
  Receipt Date: 20141002
  Transmission Date: 20150528
  Serious: Yes (Other)
  Sender: FDA-Public Use
  Company Number: US-PFIZER INC-2014270475

PATIENT
  Age: 60 Year
  Sex: Female
  Weight: 79.37 kg

DRUGS (6)
  1. PRISTIQ EXTENDED RELEASE [Suspect]
     Active Substance: DESVENLAFAXINE SUCCINATE
     Dosage: 100 MG, DAILY
  2. PRISTIQ EXTENDED RELEASE [Suspect]
     Active Substance: DESVENLAFAXINE SUCCINATE
     Dosage: CUTTING 100 MG INTO HALF
     Dates: start: 201409
  3. LUNESTA [Concomitant]
     Active Substance: ESZOPICLONE
     Indication: SLEEP DISORDER
     Dosage: 3 MG, UNK
  4. PRISTIQ EXTENDED RELEASE [Suspect]
     Active Substance: DESVENLAFAXINE SUCCINATE
     Indication: DEPRESSION
     Dosage: 50 MG, UNK
     Dates: start: 2013
  5. PRISTIQ EXTENDED RELEASE [Suspect]
     Active Substance: DESVENLAFAXINE SUCCINATE
     Dosage: 100 MG, ALTERNATE DAY
     Dates: start: 201409, end: 201409
  6. PREMARIN [Concomitant]
     Active Substance: ESTROGENS, CONJUGATED
     Dosage: UNK

REACTIONS (13)
  - Intentional product misuse [Unknown]
  - Tinnitus [Unknown]
  - Nervous system disorder [Unknown]
  - Abnormal sensation in eye [Unknown]
  - Anxiety [Unknown]
  - General physical condition abnormal [Unknown]
  - Hypertension [Unknown]
  - Anger [Unknown]
  - Drug dependence [Unknown]
  - Motion sickness [Unknown]
  - Headache [Unknown]
  - Mental impairment [Unknown]
  - Activities of daily living impaired [Unknown]
